FAERS Safety Report 9708265 (Version 1)
Quarter: 2013Q4

REPORT INFORMATION
  Report Type: Spontaneous
  Country: US (occurrence: US)
  Receive Date: 20131125
  Receipt Date: 20131125
  Transmission Date: 20140711
  Serious: Yes (Hospitalization)
  Sender: FDA-Public Use
  Company Number: US-PFIZER INC-2013331094

PATIENT
  Age: 72 Year
  Sex: Male

DRUGS (6)
  1. XALATAN [Suspect]
     Dosage: 1 GTT, 1X/DAY [ONE DROP IN BOTH EYES EACH NIGHT]
     Route: 047
     Dates: start: 2006
  2. TIMOLOL MALEATE [Suspect]
     Dosage: 1 GTT, 1X/DAY [0.5%, ONE DROP IN THE LEFT EYE ONLY ONCE DAILY]
     Route: 047
     Dates: start: 201306, end: 20130808
  3. TIMOLOL MALEATE [Suspect]
     Dosage: 0.5%, UNK
     Dates: start: 20131025, end: 20131101
  4. CRESTOR [Concomitant]
     Dosage: UNK
     Dates: end: 20130801
  5. ACETYLSALICYLIC ACID [Concomitant]
     Dosage: 81 MG, UNK
     Dates: end: 201308
  6. METOPROLOL [Concomitant]
     Dosage: UNK

REACTIONS (8)
  - Haematocrit decreased [Recovering/Resolving]
  - Decreased appetite [Not Recovered/Not Resolved]
  - Dyspnoea [Unknown]
  - Pyrexia [Recovered/Resolved]
  - Cholelithiasis [Unknown]
  - Weight decreased [Unknown]
  - Gastric pH decreased [Unknown]
  - Dry mouth [Not Recovered/Not Resolved]
